FAERS Safety Report 5482012-2 (Version None)
Quarter: 2007Q4

REPORT INFORMATION
  Report Type: 
  Country: None (occurrence: None)
  Receive Date: 20071004
  Receipt Date: 20070802
  Transmission Date: 20080405
  Serious: Yes (Other)
  Sender: FDA-Public Use
  Company Number: WAES 0707USA04070

PATIENT
  Age: 53 Year
  Sex: Male

DRUGS (14)
  1. CAP VORINOSTAT UNK [Suspect]
     Indication: MYCOSIS FUNGOIDES
     Dosage: 400 MG/DAILY/PO; 300 MG/DAILY/PO
     Route: 048
     Dates: start: 20041103, end: 20050301
  2. CAP VORINOSTAT UNK [Suspect]
     Indication: MYCOSIS FUNGOIDES
     Dosage: 400 MG/DAILY/PO; 300 MG/DAILY/PO
     Route: 048
     Dates: start: 20050301, end: 20060322
  3. CAP VORINOSTAT UNK [Suspect]
     Indication: MYCOSIS FUNGOIDES
     Dosage: 400 MG/DAILY/PO; 300 MG/DAILY/PO
     Route: 048
     Dates: start: 20060405, end: 20070622
  4. ACTOS [Concomitant]
  5. ATARAX [Concomitant]
  6. COUMADIN [Concomitant]
  7. CRESTOR [Concomitant]
  8. DIOVAN [Concomitant]
  9. FOLGARD [Concomitant]
  10. GLUCOPHAGE [Concomitant]
  11. SYNTHROID [Concomitant]
  12. FUROSEMIDE [Concomitant]
  13. OXYBUTYNIN CHLORIDE [Concomitant]
  14. TRIAMCINOLONE [Concomitant]

REACTIONS (42)
  - ALANINE AMINOTRANSFERASE INCREASED [None]
  - ALOPECIA [None]
  - ANOREXIA [None]
  - ARTHRALGIA [None]
  - ASPARTATE AMINOTRANSFERASE INCREASED [None]
  - BACK PAIN [None]
  - BLOOD ALBUMIN DECREASED [None]
  - BLOOD CREATINE PHOSPHOKINASE INCREASED [None]
  - BLOOD CREATININE INCREASED [None]
  - BLOOD LACTATE DEHYDROGENASE INCREASED [None]
  - BLOOD UREA INCREASED [None]
  - CARPAL TUNNEL SYNDROME [None]
  - DERMATITIS [None]
  - DERMATOMYOSITIS [None]
  - DIARRHOEA [None]
  - DRY MOUTH [None]
  - ELECTROCARDIOGRAM ST SEGMENT ABNORMAL [None]
  - EOSINOPHIL COUNT INCREASED [None]
  - FATIGUE [None]
  - HEADACHE [None]
  - HIGH DENSITY LIPOPROTEIN DECREASED [None]
  - LEUKOPENIA [None]
  - LYMPHOCYTE COUNT INCREASED [None]
  - MEAN CELL VOLUME INCREASED [None]
  - MONOCYTE COUNT DECREASED [None]
  - MUSCLE SPASMS [None]
  - MYALGIA [None]
  - OSTEOARTHRITIS [None]
  - PERIPHERAL COLDNESS [None]
  - PHARYNGEAL ERYTHEMA [None]
  - PLATELET COUNT DECREASED [None]
  - PROTEINURIA [None]
  - RALES [None]
  - RASH [None]
  - SCLERODACTYLIA [None]
  - SENSORY LOSS [None]
  - SKIN EXFOLIATION [None]
  - SKIN FISSURES [None]
  - SKIN TIGHTNESS [None]
  - THROMBOCYTOPENIA [None]
  - VENTRICULAR EXTRASYSTOLES [None]
  - WEIGHT DECREASED [None]
